FAERS Safety Report 4338403-6 (Version None)
Quarter: 2004Q2

REPORT INFORMATION
  Report Type: 
  Country: None (occurrence: None)
  Receive Date: 20040409
  Receipt Date: 20040401
  Transmission Date: 20050107
  Serious: Yes (Death, Hospitalization)
  Sender: FDA-Public Use
  Company Number: 2004AP01736

PATIENT
  Age: 70 Year
  Sex: Female
  Weight: 45.5 kg

DRUGS (6)
  1. MEZOLMIN [Suspect]
  2. LEVOFLOXACIN [Suspect]
  3. CEFTRIAXONE [Suspect]
  4. FAMOTIDINE [Concomitant]
  5. ATORVASTATIN [Concomitant]
  6. SENNOSIDE [Concomitant]

REACTIONS (5)
  - BRONCHITIS ACUTE [None]
  - INTERSTITIAL LUNG DISEASE [None]
  - LYMPHOCYTE STIMULATION TEST POSITIVE [None]
  - PLATELET COUNT ABNORMAL [None]
  - PLATELET COUNT DECREASED [None]
